FAERS Safety Report 10038123 (Version 1)
Quarter: 2014Q1

REPORT INFORMATION
  Report Type: Spontaneous
  Country: US (occurrence: US)
  Receive Date: 20140326
  Receipt Date: 20140326
  Transmission Date: 20141002
  Serious: No
  Sender: FDA-Public Use
  Company Number: US-B.I. PHARMACEUTICALS,INC./RIDGEFIELD-2014-BI-12538BP

PATIENT
  Sex: Female
  Weight: 80 kg

DRUGS (10)
  1. TRADJENTA [Suspect]
     Indication: TYPE 2 DIABETES MELLITUS
     Dosage: 5 MG
     Route: 048
     Dates: start: 201206
  2. METHOTREXATE [Concomitant]
     Indication: SYSTEMIC LUPUS ERYTHEMATOSUS
     Route: 065
  3. FOLIC ACID [Concomitant]
     Route: 065
  4. GABAPENTIN [Concomitant]
     Route: 065
  5. METFORMIN [Concomitant]
     Route: 065
  6. HYDROXYCHLOROQUINE [Concomitant]
     Indication: SYSTEMIC LUPUS ERYTHEMATOSUS
     Dosage: 200 MG
     Route: 048
  7. GLIMEPIRIDE [Concomitant]
     Route: 065
  8. FENOFIBRATE [Concomitant]
     Route: 065
  9. ENALAPRIL [Concomitant]
     Route: 065
  10. OMEPRAZOLE [Concomitant]
     Route: 065

REACTIONS (1)
  - Hypercalcaemia [Not Recovered/Not Resolved]
